FAERS Safety Report 21085353 (Version 1)
Quarter: 2022Q3

REPORT INFORMATION
  Report Type: Spontaneous
  Country: US (occurrence: US)
  Receive Date: 20220714
  Receipt Date: 20220714
  Transmission Date: 20221026
  Serious: No
  Sender: FDA-Public Use
  Company Number: US-EVOFEM BIOSCIENCES, INC.-2022-EVO-US000005

PATIENT

DRUGS (1)
  1. PHEXXI [Suspect]
     Active Substance: CITRIC ACID MONOHYDRATE\LACTIC ACID, L-\POTASSIUM BITARTRATE
     Indication: Contraception
     Dosage: UNK
     Dates: start: 202108, end: 20220109

REACTIONS (5)
  - Hypersensitivity [Not Recovered/Not Resolved]
  - Vulvovaginal burning sensation [Recovering/Resolving]
  - Vulvovaginal pruritus [Recovering/Resolving]
  - Vulvovaginal rash [Not Recovered/Not Resolved]
  - Device leakage [Unknown]

NARRATIVE: CASE EVENT DATE: 20220110
